FAERS Safety Report 11100782 (Version 1)
Quarter: 2015Q2

REPORT INFORMATION
  Report Type: Spontaneous
  Country: FR (occurrence: FR)
  Receive Date: 20150508
  Receipt Date: 20150508
  Transmission Date: 20150821
  Serious: Yes (Other)
  Sender: FDA-Public Use
  Company Number: FR-JNJFOC-20150423649

PATIENT
  Age: 62 Year
  Sex: Male
  Weight: 108 kg

DRUGS (3)
  1. MORPHINE [Concomitant]
     Active Substance: MORPHINE
     Indication: PAIN
     Route: 065
  2. STELARA [Suspect]
     Active Substance: USTEKINUMAB
     Indication: PSORIATIC ARTHROPATHY
     Dosage: AS PER CLASSIC PROTOCOL (W0, W4, AND W16) AND THEN ON UNKNOWN DATE RECEIVED 1 INJECTION PER MONTH
     Route: 058
  3. STELARA [Suspect]
     Active Substance: USTEKINUMAB
     Indication: PSORIATIC ARTHROPATHY
     Dosage: AS PER CLASSIC PROTOCOL (W0, W4, AND W16) AND THEN ON UNKNOWN DATE RECEIVED 1 INJECTION PER MONTH
     Route: 058

REACTIONS (3)
  - Respiratory tract infection [Not Recovered/Not Resolved]
  - Drug ineffective [Unknown]
  - Pulmonary mycosis [Not Recovered/Not Resolved]
